FAERS Safety Report 14193626 (Version 1)
Quarter: 2017Q4

REPORT INFORMATION
  Report Type: Spontaneous
  Country: US (occurrence: US)
  Receive Date: 20171116
  Receipt Date: 20171116
  Transmission Date: 20180321
  Serious: No
  Sender: FDA-Public Use
  Company Number: US-ASTRAZENECA-2017SF07970

PATIENT
  Sex: Female

DRUGS (1)
  1. TAGRISSO [Suspect]
     Active Substance: OSIMERTINIB
     Dosage: 80.0MG UNKNOWN
     Route: 048

REACTIONS (8)
  - Blister [Unknown]
  - Nail disorder [Unknown]
  - Nail bed disorder [Unknown]
  - Nail cuticle fissure [Unknown]
  - Crepitations [Unknown]
  - Nail infection [Unknown]
  - Skin disorder [Unknown]
  - Pain [Unknown]
